FAERS Safety Report 17202658 (Version 1)
Quarter: 2019Q4

REPORT INFORMATION
  Report Type: Spontaneous
  Country: US (occurrence: US)
  Receive Date: 20191204
  Receipt Date: 20191204
  Transmission Date: 20200122
  Serious: Yes (Death)
  Sender: FDA-Public Use
  Company Number: None

PATIENT
  Age: 44 Year
  Sex: Male

DRUGS (2)
  1. FUROSEMIDE. [Concomitant]
     Active Substance: FUROSEMIDE
  2. SILDENAFIL 20 MG TAB [Suspect]
     Active Substance: SILDENAFIL
     Route: 048
     Dates: start: 20191107, end: 20191129

REACTIONS (1)
  - Death [None]

NARRATIVE: CASE EVENT DATE: 20191129
